FAERS Safety Report 25387478 (Version 2)
Quarter: 2025Q3

REPORT INFORMATION
  Report Type: Spontaneous
  Country: JP (occurrence: JP)
  Receive Date: 20250602
  Receipt Date: 20250714
  Transmission Date: 20251020
  Serious: Yes (Death, Other)
  Sender: UCB
  Company Number: JP-MMM-Otsuka-6PRTHWOM

PATIENT
  Age: 90 Year
  Sex: Female

DRUGS (1)
  1. NEUPRO [Suspect]
     Active Substance: ROTIGOTINE
     Indication: Parkinson^s disease
     Dosage: 4.5 MILLIGRAM, ONCE DAILY (QD)
     Route: 062
     Dates: end: 202505

REACTIONS (3)
  - Pneumonia aspiration [Fatal]
  - Parkinson^s disease [Fatal]
  - Skin exfoliation [Unknown]

NARRATIVE: CASE EVENT DATE: 20250501
